FAERS Safety Report 6860013-7 (Version None)
Quarter: 2010Q3

REPORT INFORMATION
  Report Type: 
  Country: None (occurrence: None)
  Receive Date: 20100719
  Receipt Date: 20100719
  Transmission Date: 20110219
  Serious: Yes (Death, Life-Threatening, Hospitalization)
  Sender: FDA-Public Use
  Company Number: None

PATIENT
  Sex: Male
  Weight: 72.5755 kg

DRUGS (2)
  1. SEPTRA DS [Suspect]
     Indication: CELLULITIS
     Dosage: 1 TAB (SEPTRA) Q 12 HRS PO
     Route: 048
  2. LEVAQUIN [Suspect]
     Indication: HYPERSENSITIVITY
     Dosage: 1 TAB (LEVAQUIN) Q 24 HRS PO
     Route: 048

REACTIONS (5)
  - CHEST DISCOMFORT [None]
  - COUGH [None]
  - DYSPNOEA [None]
  - OXYGEN SATURATION DECREASED [None]
  - RASH [None]
